FAERS Safety Report 13960240 (Version 1)
Quarter: 2017Q3

REPORT INFORMATION
  Report Type: Spontaneous
  Country: US (occurrence: US)
  Receive Date: 20170912
  Receipt Date: 20170912
  Transmission Date: 20171128
  Serious: Yes (Life-Threatening, Other)
  Sender: FDA-Public Use
  Company Number: US-FRESENIUS KABI-FK201707509

PATIENT
  Age: 62 Year
  Sex: Female

DRUGS (1)
  1. DEXMEDETOMIDINE (MANUFACTURER UNKNOWN) [Suspect]
     Active Substance: DEXMEDETOMIDINE
     Indication: DELIRIUM TREMENS
     Route: 065

REACTIONS (2)
  - Product use in unapproved indication [Unknown]
  - Anaphylactic shock [Unknown]
